FAERS Safety Report 6123019-1 (Version None)
Quarter: 2009Q1

REPORT INFORMATION
  Report Type: 
  Country: None (occurrence: None)
  Receive Date: 20090318
  Receipt Date: 20090311
  Transmission Date: 20090719
  Serious: Yes (Death, Hospitalization, Other)
  Sender: FDA-Public Use
  Company Number: US-MERCK-0608USA01320

PATIENT
  Age: 70 Year
  Sex: Female

DRUGS (4)
  1. FOSAMAX [Suspect]
     Indication: OSTEOPOROSIS
     Route: 048
     Dates: start: 20030910, end: 20051028
  2. FOSAMAX [Suspect]
     Route: 048
     Dates: start: 20001103, end: 20030407
  3. LOPID [Concomitant]
     Indication: BLOOD CHOLESTEROL
     Route: 065
  4. GLUCOPHAGE [Concomitant]
     Route: 065

REACTIONS (23)
  - ACUTE MYOCARDIAL INFARCTION [None]
  - ANXIETY [None]
  - ATRIAL FIBRILLATION [None]
  - BLADDER CANCER [None]
  - CARDIOMYOPATHY [None]
  - DEATH [None]
  - DELUSION [None]
  - DEMENTIA [None]
  - DEPRESSION [None]
  - DIABETIC COMA [None]
  - DIABETIC ULCER [None]
  - DRUG ADMINISTRATION ERROR [None]
  - FALL [None]
  - FISTULA [None]
  - HUMERUS FRACTURE [None]
  - HYPOGLYCAEMIA [None]
  - JAW FRACTURE [None]
  - LUNG NEOPLASM MALIGNANT [None]
  - OSTEOMYELITIS [None]
  - OSTEONECROSIS [None]
  - PNEUMONIA [None]
  - POLYNEUROPATHY [None]
  - TOOTH ABSCESS [None]
